FAERS Safety Report 14798364 (Version 2)
Quarter: 2018Q2

REPORT INFORMATION
  Report Type: Spontaneous
  Country: DE (occurrence: DE)
  Receive Date: 20180424
  Receipt Date: 20180515
  Transmission Date: 20180711
  Serious: Yes (Hospitalization, Other)
  Sender: FDA-Public Use
  Company Number: DE-AMGEN-DEUSP2018053234

PATIENT
  Age: 58 Year
  Sex: Female

DRUGS (2)
  1. ATORVASTATIN [Concomitant]
     Active Substance: ATORVASTATIN
     Indication: PROPHYLAXIS
     Dosage: UNK, QD
     Dates: start: 201803
  2. PROLIA [Suspect]
     Active Substance: DENOSUMAB
     Indication: OSTEOPOROSIS POSTMENOPAUSAL
     Dosage: 60 MG, UNK
     Route: 058
     Dates: start: 20171214

REACTIONS (7)
  - Myocarditis [Recovering/Resolving]
  - Fall [Unknown]
  - General physical health deterioration [Unknown]
  - Hypoventilation [Unknown]
  - Hypoperfusion [Unknown]
  - Pericardial effusion [Recovering/Resolving]
  - Microangiopathy [Unknown]

NARRATIVE: CASE EVENT DATE: 201801
